FAERS Safety Report 21856190 (Version 1)
Quarter: 2023Q1

REPORT INFORMATION
  Report Type: Spontaneous
  Country: US (occurrence: US)
  Receive Date: 20230112
  Receipt Date: 20230112
  Transmission Date: 20230417
  Serious: Yes (Death, Hospitalization)
  Sender: FDA-Public Use
  Company Number: US-ACERUSPHRM-2022-US-000682

PATIENT
  Age: 58 Year
  Sex: Male
  Weight: 102.4 kg

DRUGS (1)
  1. TESTOSTERONE [Suspect]
     Active Substance: TESTOSTERONE
     Indication: Sarcopenia
     Route: 030

REACTIONS (2)
  - Death [Fatal]
  - Renal failure [Unknown]
